FAERS Safety Report 5792766-3 (Version None)
Quarter: 2008Q2

REPORT INFORMATION
  Report Type: 
  Country: None (occurrence: None)
  Receive Date: 20080624
  Receipt Date: 20080613
  Transmission Date: 20081010
  Serious: Yes (Hospitalization)
  Sender: FDA-Public Use
  Company Number: 2008BI006092

PATIENT
  Age: 65 Year
  Sex: Female
  Weight: 66.6788 kg

DRUGS (1)
  1. TYSABRI [Suspect]
     Indication: MULTIPLE SCLEROSIS
     Dosage: 300 MG;QM;IV
     Route: 042
     Dates: start: 20061101

REACTIONS (12)
  - BALANCE DISORDER [None]
  - BLOOD TRIGLYCERIDES INCREASED [None]
  - COGNITIVE DISORDER [None]
  - COLONIC POLYP [None]
  - CYST [None]
  - FATIGUE [None]
  - FEELING COLD [None]
  - FEELING HOT [None]
  - KNEE OPERATION [None]
  - PNEUMONIA [None]
  - POST PROCEDURAL COMPLICATION [None]
  - SYSTEMIC LUPUS ERYTHEMATOSUS [None]
